FAERS Safety Report 10627458 (Version 1)
Quarter: 2014Q4

REPORT INFORMATION
  Report Type: Spontaneous
  Country: IT (occurrence: IT)
  Receive Date: 20141205
  Receipt Date: 20141205
  Transmission Date: 20150529
  Serious: Yes (Other)
  Sender: FDA-Public Use
  Company Number: IT-ROCHE-1502014

PATIENT
  Age: 74 Year
  Sex: Male

DRUGS (5)
  1. DECADRON [Concomitant]
     Active Substance: DEXAMETHASONE
  2. PARACETAMOL [Concomitant]
     Active Substance: ACETAMINOPHEN
  3. DELORAZEPAM [Concomitant]
     Active Substance: DELORAZEPAM
  4. TRIMETON (ITALY) [Concomitant]
  5. MABTHERA [Suspect]
     Active Substance: RITUXIMAB
     Indication: CHRONIC LYMPHOCYTIC LEUKAEMIA
     Route: 042
     Dates: start: 20141118, end: 20141118

REACTIONS (4)
  - Vomiting [Recovered/Resolved]
  - Clonus [Recovered/Resolved]
  - Incontinence [Recovered/Resolved]
  - Loss of consciousness [Recovered/Resolved]

NARRATIVE: CASE EVENT DATE: 20141118
